FAERS Safety Report 6451743-X (Version None)
Quarter: 2009Q4

REPORT INFORMATION
  Report Type: 
  Country: None (occurrence: None)
  Receive Date: 20091123
  Receipt Date: 20091112
  Transmission Date: 20100525
  Serious: Yes (Other)
  Sender: FDA-Public Use
  Company Number: JP-PFIZER INC-2009298671

PATIENT
  Age: 46 Year
  Sex: Male

DRUGS (2)
  1. GABAPEN [Suspect]
     Indication: POST-TRAUMATIC EPILEPSY
     Dosage: 400 MG, 3X/DAY
     Route: 048
     Dates: start: 20070501
  2. DEPAKENE [Concomitant]
     Indication: EPILEPSY
     Dosage: UNK
     Route: 048
     Dates: start: 20060901

REACTIONS (3)
  - ERYTHEMA [None]
  - PRURITUS [None]
  - RASH GENERALISED [None]
